FAERS Safety Report 19081051 (Version 1)
Quarter: 2021Q2

REPORT INFORMATION
  Report Type: Spontaneous
  Country: JP (occurrence: JP)
  Receive Date: 20210401
  Receipt Date: 20210401
  Transmission Date: 20210717
  Serious: Yes (Other)
  Sender: FDA-Public Use
  Company Number: JP-JNJFOC-20210400056

PATIENT
  Sex: Female

DRUGS (4)
  1. REMICADE [Suspect]
     Active Substance: INFLIXIMAB
     Dosage: 265 MILLIGRAM, QD
     Route: 042
     Dates: start: 20210313
  2. REMICADE [Suspect]
     Active Substance: INFLIXIMAB
     Dosage: 400 MILLIGRAM, QD
     Route: 042
     Dates: start: 20201201
  3. REMICADE [Suspect]
     Active Substance: INFLIXIMAB
     Indication: PRODUCT USED FOR UNKNOWN INDICATION
     Dosage: 300 MILLIGRAM, QD
     Route: 042
  4. REMICADE [Suspect]
     Active Substance: INFLIXIMAB
     Dosage: 350 MILLIGRAM, QD
     Route: 042
     Dates: start: 20201006

REACTIONS (3)
  - Dyspnoea [Unknown]
  - Pneumocystis jirovecii pneumonia [Unknown]
  - Anal fistula [Unknown]
